FAERS Safety Report 15586802 (Version 1)
Quarter: 2018Q4

REPORT INFORMATION
  Report Type: Spontaneous
  Country: US (occurrence: US)
  Receive Date: 20181105
  Receipt Date: 20181105
  Transmission Date: 20190205
  Serious: No
  Sender: FDA-Public Use
  Company Number: None

PATIENT
  Age: 43 Year
  Sex: Female
  Weight: 78.75 kg

DRUGS (2)
  1. SYNTHROID [Suspect]
     Active Substance: LEVOTHYROXINE SODIUM
     Indication: HYPOTHYROIDISM
     Dosage: ?          OTHER STRENGTH:MCG;QUANTITY:1 TABLET(S);?
     Route: 048
  2. WOMEN^S ONE A DAY VITAMIN [Concomitant]

REACTIONS (8)
  - Anxiety [None]
  - Headache [None]
  - Heart rate increased [None]
  - Heart rate irregular [None]
  - Hyperhidrosis [None]
  - Irritability [None]
  - Temperature intolerance [None]
  - Sinus disorder [None]

NARRATIVE: CASE EVENT DATE: 20180621
